FAERS Safety Report 12650431 (Version 3)
Quarter: 2016Q4

REPORT INFORMATION
  Report Type: Report from Study
  Country: US (occurrence: US)
  Receive Date: 20160814
  Receipt Date: 20161122
  Transmission Date: 20170207
  Serious: Yes (Other)
  Sender: FDA-Public Use
  Company Number: US-AMGEN-USASP2016103567

PATIENT
  Age: 73 Year
  Sex: Female

DRUGS (3)
  1. FLU [Suspect]
     Active Substance: INFLUENZA VIRUS VACCINE
     Indication: PRODUCT USED FOR UNKNOWN INDICATION
     Dosage: UNK
     Route: 065
     Dates: start: 20160919
  2. ENBREL [Suspect]
     Active Substance: ETANERCEPT
     Indication: PSORIATIC ARTHROPATHY
     Dosage: 50 MG, QWK
     Route: 065
  3. ENBREL [Suspect]
     Active Substance: ETANERCEPT
     Indication: OSTEOARTHRITIS

REACTIONS (13)
  - Nail disorder [Unknown]
  - Arthritis [Unknown]
  - Pulmonary mass [Unknown]
  - Bronchitis chronic [Unknown]
  - Injection site extravasation [Unknown]
  - Injection site pain [Unknown]
  - Pneumonia [Unknown]
  - Fungal infection [Unknown]
  - Cataract [Unknown]
  - Cough [Not Recovered/Not Resolved]
  - Vocal cord disorder [Unknown]
  - Paronychia [Unknown]
  - Injection site bruising [Unknown]

NARRATIVE: CASE EVENT DATE: 2016
